FAERS Safety Report 7448667-8 (Version None)
Quarter: 2011Q2

REPORT INFORMATION
  Report Type: 
  Country: None (occurrence: None)
  Receive Date: 20110429
  Receipt Date: 20100716
  Transmission Date: 20111010
  Serious: No
  Sender: FDA-Public Use
  Company Number: US-ASTRAZENECA-2010SE33415

PATIENT

DRUGS (3)
  1. NEXIUM [Suspect]
     Route: 048
  2. PROTONIX [Interacting]
     Route: 065
  3. CLOPIDOGREL [Interacting]
     Route: 065

REACTIONS (2)
  - CONTUSION [None]
  - DRUG INTERACTION [None]
